FAERS Safety Report 6186665-5 (Version None)
Quarter: 2009Q2

REPORT INFORMATION
  Report Type: 
  Country: None (occurrence: None)
  Receive Date: 20090512
  Receipt Date: 20090505
  Transmission Date: 20091009
  Serious: Yes (Death, Hospitalization)
  Sender: FDA-Public Use
  Company Number: US-BIOGENIDEC-2009BI013479

PATIENT
  Age: 60 Year
  Sex: Female
  Weight: 44 kg

DRUGS (1)
  1. AVONEX [Suspect]
     Indication: MULTIPLE SCLEROSIS
     Route: 030
     Dates: start: 19960101

REACTIONS (3)
  - LUNG NEOPLASM MALIGNANT [None]
  - RENAL CANCER [None]
  - RENAL HAEMORRHAGE [None]
